FAERS Safety Report 9504272 (Version 1)
Quarter: 2013Q3

REPORT INFORMATION
  Report Type: Spontaneous
  Country: GB (occurrence: GB)
  Receive Date: 20130906
  Receipt Date: 20130906
  Transmission Date: 20140515
  Serious: Yes (Other)
  Sender: FDA-Public Use
  Company Number: GB-TEVA-429725ISR

PATIENT
  Age: 59 Year
  Sex: Female
  Weight: 88 kg

DRUGS (1)
  1. RAMIPRIL [Suspect]
     Indication: BLOOD PRESSURE INCREASED
     Route: 048
     Dates: start: 20130214, end: 20130314

REACTIONS (3)
  - Pruritus [Recovered/Resolved]
  - Oral mucosal exfoliation [Recovered/Resolved]
  - Skin exfoliation [Recovered/Resolved]
